FAERS Safety Report 13659610 (Version 1)
Quarter: 2017Q2

REPORT INFORMATION
  Report Type: Spontaneous
  Country: US (occurrence: US)
  Receive Date: 20170616
  Receipt Date: 20170616
  Transmission Date: 20170830
  Serious: Yes (Hospitalization)
  Sender: FDA-Public Use
  Company Number: None

PATIENT
  Age: 67 Year
  Sex: Male
  Weight: 80 kg

DRUGS (11)
  1. BUMEX [Concomitant]
     Active Substance: BUMETANIDE
  2. FOLVITE [Concomitant]
     Active Substance: FOLIC ACID
  3. MVI [Concomitant]
     Active Substance: VITAMINS
  4. DURAGESIC [Concomitant]
     Active Substance: FENTANYL
  5. FE [Concomitant]
     Active Substance: IRON
  6. OXY-IR [Concomitant]
     Active Substance: OXYCODONE HYDROCHLORIDE
  7. ALDACTONE [Concomitant]
     Active Substance: SPIRONOLACTONE
  8. COLACE [Concomitant]
     Active Substance: DOCUSATE SODIUM
  9. ELIQUIS [Suspect]
     Active Substance: APIXABAN
     Indication: ATRIAL FIBRILLATION
     Dosage: DATES OF USE - CHRONIC
     Route: 048
  10. MAG OX [Concomitant]
     Active Substance: MAGNESIUM OXIDE
  11. KLOR-CON [Concomitant]
     Active Substance: POTASSIUM CHLORIDE

REACTIONS (2)
  - Gastrointestinal haemorrhage [None]
  - Haemorrhagic anaemia [None]

NARRATIVE: CASE EVENT DATE: 20170215
